FAERS Safety Report 23851856 (Version 1)
Quarter: 2024Q2

REPORT INFORMATION
  Report Type: Spontaneous
  Country: US (occurrence: US)
  Receive Date: 20240514
  Receipt Date: 20240514
  Transmission Date: 20240717
  Serious: No
  Sender: FDA-Public Use
  Company Number: US-IPSEN Group, Research and Development-2024-07588

PATIENT

DRUGS (4)
  1. SOMATULINE DEPOT [Suspect]
     Active Substance: LANREOTIDE ACETATE
     Indication: Acromegaly
     Route: 065
  2. DICLOFENAC [Concomitant]
     Active Substance: DICLOFENAC
  3. CELEBREX [Concomitant]
     Active Substance: CELECOXIB
  4. PEGVISOMANT [Concomitant]
     Active Substance: PEGVISOMANT
     Indication: Acromegaly

REACTIONS (4)
  - Dizziness [Unknown]
  - Fall [Unknown]
  - Head injury [Unknown]
  - Haemorrhage [Unknown]
